FAERS Safety Report 11538123 (Version 2)
Quarter: 2015Q4

REPORT INFORMATION
  Report Type: Report from Study
  Country: BR (occurrence: BR)
  Receive Date: 20150922
  Receipt Date: 20151007
  Transmission Date: 20160304
  Serious: Yes (Life-Threatening, Other)
  Sender: FDA-Public Use
  Company Number: PHHY2015BR114299

PATIENT
  Sex: Female
  Weight: 67 kg

DRUGS (4)
  1. HYDROCHLOROTHIAZIDE. [Concomitant]
     Active Substance: HYDROCHLOROTHIAZIDE
     Indication: HYPERTENSION
     Dosage: 1 DF, QD
     Route: 048
  2. CHLORDIAZEPOXIDE [Concomitant]
     Active Substance: CHLORDIAZEPOXIDE
     Indication: ANXIETY
     Dosage: 1 DF, QD
     Route: 048
  3. ZELMAC [Suspect]
     Active Substance: TEGASEROD
     Indication: CONSTIPATION
     Dosage: 2 DF, QD (BEFORE BREAKFAST)
     Route: 048
  4. SONEBON [Concomitant]
     Indication: SLEEP DISORDER
     Dosage: 1 DF, AT NIGHT
     Route: 048

REACTIONS (8)
  - Cold sweat [Recovered/Resolved]
  - Dizziness [Recovered/Resolved]
  - Apparent death [Recovered/Resolved]
  - Hyperhidrosis [Recovered/Resolved]
  - Pallor [Recovered/Resolved]
  - Malaise [Recovered/Resolved]
  - Ileus paralytic [Recovered/Resolved]
  - Intestinal dilatation [Recovering/Resolving]
